FAERS Safety Report 4664248-3 (Version None)
Quarter: 2005Q2

REPORT INFORMATION
  Report Type: 
  Country: None (occurrence: None)
  Receive Date: 20050516
  Receipt Date: 20050506
  Transmission Date: 20051028
  Serious: Yes (Other)
  Sender: FDA-Public Use
  Company Number: 2005-05-0112

PATIENT
  Age: 3 Year
  Sex: Female

DRUGS (1)
  1. CLARITIN D12 SYRUP (LORATADINE 1 MG / PSEUDOEPHEDRIN SYRUP [Suspect]
     Indication: RHINITIS
     Dosage: 5 ML QD ORAL
     Route: 048
     Dates: start: 20050425, end: 20050427

REACTIONS (3)
  - ABNORMAL BEHAVIOUR [None]
  - HALLUCINATION [None]
  - INSOMNIA [None]
